FAERS Safety Report 6852194-6 (Version None)
Quarter: 2010Q3

REPORT INFORMATION
  Report Type: 
  Country: None (occurrence: None)
  Receive Date: 20100717
  Receipt Date: 20080517
  Transmission Date: 20110219
  Serious: No
  Sender: FDA-Public Use
  Company Number: US-PFIZER INC-2007094081

PATIENT
  Age: 45 Year
  Sex: Female
  Weight: 79.4 kg

DRUGS (7)
  1. CHANTIX [Suspect]
     Indication: SMOKING CESSATION THERAPY
     Route: 048
     Dates: start: 20070901
  2. PROZAC [Concomitant]
  3. LIPITOR [Concomitant]
  4. HYDROCHLOROTHIAZIDE [Concomitant]
  5. ATENOLOL [Concomitant]
  6. LISDEXAMFETAMINE DIMESYLATE (VYVANSE) [Concomitant]
     Dates: start: 20070726, end: 20070927
  7. ADDERALL XR 10 [Concomitant]
     Dates: start: 20070927

REACTIONS (4)
  - DEPRESSION [None]
  - IRRITABILITY [None]
  - MOOD ALTERED [None]
  - STRESS [None]
